FAERS Safety Report 12553283 (Version 3)
Quarter: 2016Q3

REPORT INFORMATION
  Report Type: Spontaneous
  Country: US (occurrence: US)
  Receive Date: 20160713
  Receipt Date: 20160808
  Transmission Date: 20161109
  Serious: No
  Sender: FDA-Public Use
  Company Number: US-BEH-2016062334

PATIENT
  Sex: Female
  Weight: 63 kg

DRUGS (24)
  1. MAXALT [Concomitant]
     Active Substance: RIZATRIPTAN BENZOATE
  2. MULTIVITAMIN [Concomitant]
     Active Substance: VITAMINS
  3. CLARITIN [Concomitant]
     Active Substance: LORATADINE
  4. KEPPRA [Concomitant]
     Active Substance: LEVETIRACETAM
  5. FLAXSEED [Concomitant]
     Active Substance: FLAX SEED
  6. ACETAMINOPHEN. [Concomitant]
     Active Substance: ACETAMINOPHEN
  7. DIPHENHYDRAMINE. [Concomitant]
     Active Substance: DIPHENHYDRAMINE
  8. DIASTAT [Concomitant]
     Active Substance: DIAZEPAM
  9. DEXEDRINE [Concomitant]
     Active Substance: DEXTROAMPHETAMINE SULFATE
  10. ZOFRAN [Concomitant]
     Active Substance: ONDANSETRON HYDROCHLORIDE
  11. HIZENTRA [Suspect]
     Active Substance: HUMAN IMMUNOGLOBULIN G
     Indication: IMMUNODEFICIENCY COMMON VARIABLE
     Route: 058
     Dates: start: 20150518
  12. LMX [Concomitant]
     Active Substance: LIDOCAINE
  13. NYSTATIN. [Concomitant]
     Active Substance: NYSTATIN
  14. CLONIDINE. [Concomitant]
     Active Substance: CLONIDINE
  15. BACTROBAN [Concomitant]
     Active Substance: MUPIROCIN\MUPIROCIN CALCIUM
  16. BENEFIBER [Concomitant]
     Active Substance: STARCH, WHEAT
  17. PRILOSEC [Concomitant]
     Active Substance: OMEPRAZOLE MAGNESIUM
  18. ALBUTEROL. [Concomitant]
     Active Substance: ALBUTEROL
  19. TOPAMAX [Concomitant]
     Active Substance: TOPIRAMATE
  20. ZADITOR [Concomitant]
     Active Substance: KETOTIFEN FUMARATE
  21. VENTOLIN [Concomitant]
     Active Substance: ALBUTEROL SULFATE
  22. BENZACLIN [Concomitant]
     Active Substance: BENZOYL PEROXIDE\CLINDAMYCIN PHOSPHATE
  23. EPIPEN [Concomitant]
     Active Substance: EPINEPHRINE
  24. CALCIUM [Concomitant]
     Active Substance: CALCIUM

REACTIONS (1)
  - Sinusitis [Unknown]
